FAERS Safety Report 7691046-9 (Version None)
Quarter: 2011Q3

REPORT INFORMATION
  Report Type: 
  Country: None (occurrence: None)
  Receive Date: 20110818
  Receipt Date: 20110809
  Transmission Date: 20111222
  Serious: Yes (Hospitalization)
  Sender: FDA-Public Use
  Company Number: FR-ASTRAZENECA-2011SE47668

PATIENT
  Age: 503 Month
  Sex: Female

DRUGS (2)
  1. XYLOCAINE W/ EPINEPHRINE [Suspect]
     Route: 067
     Dates: start: 20091101
  2. BETA-BLOCKER [Concomitant]

REACTIONS (4)
  - VENTRICULAR TACHYCARDIA [None]
  - HYPERTENSIVE HEART DISEASE [None]
  - HYPERTENSION [None]
  - SKIN TEST NEGATIVE [None]
